FAERS Safety Report 18029432 (Version 1)
Quarter: 2020Q3

REPORT INFORMATION
  Report Type: Spontaneous
  Country: US (occurrence: US)
  Receive Date: 20200714
  Receipt Date: 20200714
  Transmission Date: 20201103
  Serious: Yes (Hospitalization)
  Sender: FDA-Public Use
  Company Number: None

PATIENT
  Age: 76 Year
  Sex: Male
  Weight: 68 kg

DRUGS (1)
  1. ZOLEDRONIC (ZOLEDRONIC ACID 4MG/BAG INJ,100ML) [Suspect]
     Active Substance: ZOLEDRONIC ACID
     Dates: start: 20200214, end: 20200214

REACTIONS (6)
  - Dyspnoea [None]
  - Confusional state [None]
  - Pyrexia [None]
  - Asthenia [None]
  - Chills [None]
  - Cough [None]

NARRATIVE: CASE EVENT DATE: 20200215
